FAERS Safety Report 21650705 (Version 1)
Quarter: 2022Q4

REPORT INFORMATION
  Report Type: Spontaneous
  Country: JP (occurrence: JP)
  Receive Date: 20221128
  Receipt Date: 20221128
  Transmission Date: 20230112
  Serious: No
  Sender: FDA-Public Use
  Company Number: JP-PFIZER INC-202201319174

PATIENT
  Age: 98 Year
  Sex: Female

DRUGS (2)
  1. PAXLOVID [Suspect]
     Active Substance: NIRMATRELVIR\RITONAVIR
     Indication: COVID-19 treatment
     Dosage: MAY HAVE BEEN TAKEN ONCE
     Route: 048
  2. AZELNIDIPINE [Suspect]
     Active Substance: AZELNIDIPINE
     Route: 048

REACTIONS (1)
  - Contraindicated product administered [Unknown]
